FAERS Safety Report 4979483-4 (Version None)
Quarter: 2006Q2

REPORT INFORMATION
  Report Type: 
  Country: None (occurrence: None)
  Receive Date: 20060418
  Receipt Date: 20060329
  Transmission Date: 20061013
  Serious: Yes (Hospitalization)
  Sender: FDA-Public Use
  Company Number: JP200603007177

PATIENT
  Sex: Female

DRUGS (3)
  1. GEMZAR [Suspect]
     Indication: COLON CANCER RECURRENT
     Dosage: INTRAVENOUS
     Route: 042
     Dates: start: 20041101
  2. METHOTREXATE SODIUM [Concomitant]
  3. FLUOROURACIL [Concomitant]

REACTIONS (1)
  - EOSINOPHILIC PNEUMONIA [None]
